FAERS Safety Report 10530259 (Version 1)
Quarter: 2014Q4

REPORT INFORMATION
  Report Type: Spontaneous
  Country: IR (occurrence: None)
  Receive Date: 20141017
  Receipt Date: 20141017
  Transmission Date: 20150528
  Serious: Yes (Hospitalization)
  Sender: FDA-Public Use
  Company Number: NSR_01639_2014

PATIENT
  Age: 32 Year
  Sex: Male

DRUGS (1)
  1. PROPANOLOL [Suspect]
     Active Substance: PROPRANOLOL HYDROCHLORIDE
     Indication: PRODUCT USED FOR UNKNOWN INDICATION
     Dosage: (60 TABLETS) [NOT THE PRESCRIBED AMOUNT])

REACTIONS (7)
  - Shock [None]
  - Intentional overdose [None]
  - Toxicity to various agents [None]
  - Depressed level of consciousness [None]
  - Temporomandibular joint syndrome [None]
  - Joint dislocation [None]
  - Metabolic acidosis [None]
